FAERS Safety Report 24760228 (Version 1)
Quarter: 2024Q4

REPORT INFORMATION
  Report Type: Spontaneous
  Country: US (occurrence: US)
  Receive Date: 20241220
  Receipt Date: 20241220
  Transmission Date: 20250114
  Serious: Yes (Hospitalization, Other)
  Sender: SANOFI AVENTIS
  Company Number: US-SA-2024SA374609

PATIENT
  Sex: Female

DRUGS (1)
  1. KEVZARA [Suspect]
     Active Substance: SARILUMAB
     Indication: Rheumatoid arthritis
     Dosage: 200 MG, QOW
     Route: 058

REACTIONS (11)
  - Renal failure [Unknown]
  - Cardiac failure [Unknown]
  - Respiratory failure [Unknown]
  - Rheumatoid arthritis [Unknown]
  - Arthralgia [Unknown]
  - Gastroenteritis viral [Not Recovered/Not Resolved]
  - Chills [Recovered/Resolved]
  - Pain [Recovered/Resolved]
  - Pyrexia [Recovered/Resolved]
  - Fatigue [Not Recovered/Not Resolved]
  - Gastrointestinal disorder [Recovered/Resolved]
